FAERS Safety Report 5822321-8 (Version None)
Quarter: 2008Q3

REPORT INFORMATION
  Report Type: 
  Country: None (occurrence: None)
  Receive Date: 20080723
  Receipt Date: 20080723
  Transmission Date: 20090109
  Serious: Yes (Disabling)
  Sender: FDA-Public Use
  Company Number: None

PATIENT
  Age: 21 Year
  Sex: Female
  Weight: 57.1532 kg

DRUGS (2)
  1. PREDNISONE [Suspect]
     Indication: COLITIS ULCERATIVE
     Dosage: 20 MG 3 X A DAY PO
     Route: 048
     Dates: start: 20060901, end: 20060921
  2. SOLU-MEDROL [Suspect]
     Indication: COLITIS ULCERATIVE
     Dosage: 30 MG 3 X A DAY IV
     Route: 042
     Dates: start: 20061111, end: 20061215

REACTIONS (1)
  - OSTEONECROSIS [None]
